FAERS Safety Report 16265160 (Version 1)
Quarter: 2019Q2

REPORT INFORMATION
  Report Type: Spontaneous
  Country: US (occurrence: US)
  Receive Date: 20190328
  Receipt Date: 20190328
  Transmission Date: 20190711
  Serious: No
  Sender: FDA-Public Use
  Company Number: None

PATIENT
  Age: 82 Year
  Sex: Female

DRUGS (1)
  1. VOTRIENT [Suspect]
     Active Substance: PAZOPANIB HYDROCHLORIDE
     Dates: start: 20190124

REACTIONS (4)
  - Bone pain [None]
  - Nausea [None]
  - Food allergy [None]
  - Diarrhoea [None]

NARRATIVE: CASE EVENT DATE: 20190328
